FAERS Safety Report 9254970 (Version 1)
Quarter: 2013Q2

REPORT INFORMATION
  Report Type: Report from Study
  Country: AU (occurrence: AU)
  Receive Date: 20130425
  Receipt Date: 20130425
  Transmission Date: 20140414
  Serious: Yes (Hospitalization, Other)
  Sender: FDA-Public Use
  Company Number: PHHY2011AU117918

PATIENT
  Sex: Female

DRUGS (3)
  1. EXJADE [Suspect]
     Indication: MYELODYSPLASTIC SYNDROME
     Dosage: 1000 MG
     Route: 048
     Dates: start: 20101118
  2. PLAVIX [Concomitant]
     Dosage: UNK
  3. CALTRATE [Concomitant]
     Dosage: UNK UKN, UNK

REACTIONS (5)
  - Procedural complication [Unknown]
  - Haemorrhage [Unknown]
  - Dysphagia [Unknown]
  - Foreign body [Unknown]
  - Gastrooesophageal reflux disease [Unknown]
